FAERS Safety Report 9186918 (Version 2)
Quarter: 2013Q2

REPORT INFORMATION
  Report Type: Report from Study
  Country: DE (occurrence: DE)
  Receive Date: 20130325
  Receipt Date: 20130522
  Transmission Date: 20140414
  Serious: Yes (Hospitalization)
  Sender: FDA-Public Use
  Company Number: DE-GLAXOSMITHKLINE-B0836636A

PATIENT
  Age: 58 Year
  Sex: Female
  Weight: 102 kg

DRUGS (10)
  1. LAPATINIB [Suspect]
     Indication: BREAST CANCER
     Dosage: 750MG PER DAY
     Route: 048
     Dates: start: 20120809, end: 20121007
  2. TRASTUZUMAB [Suspect]
     Indication: BREAST CANCER
     Dosage: 6MGK EVERY 3 WEEKS
     Route: 042
     Dates: start: 20120808
  3. PACLITAXEL [Suspect]
     Indication: BREAST CANCER
     Dosage: 80MGM2 WEEKLY
     Route: 042
     Dates: start: 20120809
  4. MYOCET [Suspect]
     Indication: BREAST CANCER
     Dosage: 20MGM2 WEEKLY
     Route: 042
     Dates: start: 20120809, end: 20121019
  5. CARBOPLATIN [Suspect]
     Indication: BREAST CANCER
     Dosage: 1.5MGL WEEKLY
     Route: 042
     Dates: start: 20120809, end: 20121019
  6. KEVATRIL [Concomitant]
     Dosage: 1MG PER DAY
     Route: 065
     Dates: start: 20120809, end: 20121002
  7. FENISTIL [Concomitant]
     Dosage: 4MG PER DAY
     Route: 065
     Dates: start: 20120809, end: 201210
  8. RANITIC [Concomitant]
     Dosage: 5MG PER DAY
     Route: 065
     Dates: start: 20120809, end: 20121002
  9. DEXAMETHASONE [Concomitant]
     Dosage: 4MG PER DAY
     Route: 065
     Dates: start: 20120809, end: 20121002
  10. NEUPOGEN [Concomitant]
     Dates: start: 20120911, end: 20121007

REACTIONS (2)
  - Diarrhoea [Recovered/Resolved]
  - Sepsis [Recovered/Resolved]
